FAERS Safety Report 13410140 (Version 1)
Quarter: 2017Q2

REPORT INFORMATION
  Report Type: Spontaneous
  Country: US (occurrence: US)
  Receive Date: 20170406
  Receipt Date: 20170406
  Transmission Date: 20170830
  Serious: Yes (Hospitalization)
  Sender: FDA-Public Use
  Company Number: US-FRESENIUS MEDICAL CARE RENAL THERAPIES GROUP-FMC-1704-000461

PATIENT
  Sex: Male
  Weight: 75 kg

DRUGS (8)
  1. ABACAVIR. [Concomitant]
     Active Substance: ABACAVIR
  2. AMLODIPINE [Concomitant]
     Active Substance: AMLODIPINE BESYLATE
  3. RENVELA [Concomitant]
     Active Substance: SEVELAMER CARBONATE
  4. DELFLEX WITH DEXTROSE 1.5% LOW MAGNESIUM LOW CALCIUM [Suspect]
     Active Substance: CALCIUM CHLORIDE\DEXTROSE\MAGNESIUM CHLORIDE\SODIUM CHLORIDE\SODIUM LACTATE
     Indication: END STAGE RENAL DISEASE
     Route: 033
  5. ASPIRIN. [Concomitant]
     Active Substance: ASPIRIN
  6. CALCITRIOL. [Concomitant]
     Active Substance: CALCITRIOL
  7. METOPROLOL SUCCINATE. [Concomitant]
     Active Substance: METOPROLOL SUCCINATE
  8. NORVASC [Concomitant]
     Active Substance: AMLODIPINE BESYLATE

REACTIONS (1)
  - Hypervolaemia [Recovered/Resolved]
